FAERS Safety Report 8909973 (Version 6)
Quarter: 2013Q3

REPORT INFORMATION
  Report Type: Report from Study
  Country: BE (occurrence: BE)
  Receive Date: 20121115
  Receipt Date: 20130805
  Transmission Date: 20140515
  Serious: Yes (Death, Hospitalization)
  Sender: FDA-Public Use
  Company Number: BE-SANOFI-AVENTIS-2012SA075485

PATIENT
  Age: 79 Year
  Sex: Male
  Weight: 78 kg

DRUGS (8)
  1. CABAZITAXEL [Suspect]
     Indication: PROSTATE CANCER METASTATIC
     Route: 042
     Dates: start: 20120629, end: 20120629
  2. CABAZITAXEL [Suspect]
     Indication: PROSTATE CANCER METASTATIC
     Route: 042
     Dates: start: 20120921, end: 20120921
  3. PREDNISONE [Suspect]
     Indication: PROSTATE CANCER METASTATIC
     Route: 048
     Dates: start: 20120629, end: 20121008
  4. BISOPROLOL [Concomitant]
     Indication: PROPHYLAXIS
     Route: 048
     Dates: start: 20120627
  5. VENLAFAXINE [Concomitant]
     Indication: PROPHYLAXIS
     Route: 048
     Dates: start: 20120803
  6. ZALDIAR [Concomitant]
     Indication: PROPHYLAXIS
     Route: 048
     Dates: start: 20120920
  7. GELATIN [Concomitant]
     Indication: PROPHYLAXIS
     Route: 048
     Dates: start: 20120910
  8. OMEPRAZOLE [Concomitant]
     Indication: PROPHYLAXIS
     Route: 048
     Dates: start: 20120927

REACTIONS (4)
  - Rectal haemorrhage [Recovered/Resolved]
  - Haematuria [Recovered/Resolved]
  - Disease progression [Fatal]
  - Pathological fracture [Not Recovered/Not Resolved]
